FAERS Safety Report 23577025 (Version 3)
Quarter: 2024Q2

REPORT INFORMATION
  Report Type: Report from Study
  Country: US (occurrence: US)
  Receive Date: 20240228
  Receipt Date: 20240528
  Transmission Date: 20240715
  Serious: Yes (Hospitalization, Other)
  Sender: FDA-Public Use
  Company Number: US-ABBVIE-5656445

PATIENT
  Age: 87 Year
  Sex: Female
  Weight: 64.41 kg

DRUGS (4)
  1. SKYRIZI [Suspect]
     Active Substance: RISANKIZUMAB-RZAA
     Indication: Psoriasis
     Route: 058
     Dates: start: 20230410
  2. VITAMIN B12 [Concomitant]
     Active Substance: CYANOCOBALAMIN
     Indication: Product used for unknown indication
     Route: 065
  3. ALENDRONATE SODIUM [Concomitant]
     Active Substance: ALENDRONATE SODIUM
     Indication: Bone disorder
     Route: 065
  4. LOSARTAN [Concomitant]
     Active Substance: LOSARTAN
     Indication: Product used for unknown indication
     Route: 065

REACTIONS (3)
  - Aortic aneurysm [Recovering/Resolving]
  - Transient ischaemic attack [Recovering/Resolving]
  - Movement disorder [Recovered/Resolved]

NARRATIVE: CASE EVENT DATE: 20240401
